FAERS Safety Report 4949217-8 (Version None)
Quarter: 2006Q1

REPORT INFORMATION
  Report Type: 
  Country: None (occurrence: None)
  Receive Date: 20060321
  Receipt Date: 20050707
  Transmission Date: 20060701
  Serious: Yes (Hospitalization, Disabling)
  Sender: FDA-Public Use
  Company Number: US-MERCK-0507USA01263

PATIENT
  Age: 39 Year
  Sex: Female
  Weight: 75 kg

DRUGS (7)
  1. VIOXX [Suspect]
     Indication: BACK PAIN
     Route: 048
     Dates: start: 20010925, end: 20011001
  2. VICODIN [Concomitant]
     Route: 065
     Dates: start: 20010625
  3. FLEXERIL [Concomitant]
     Route: 065
  4. MOTRIN [Concomitant]
     Route: 065
     Dates: start: 20010625
  5. NORCO [Concomitant]
     Route: 065
     Dates: start: 20010625
  6. IBUPROFEN [Concomitant]
     Route: 065
     Dates: start: 20010625
  7. NAPROXEN [Concomitant]
     Route: 065
     Dates: start: 20010625, end: 20011001

REACTIONS (37)
  - ANXIETY [None]
  - BRONCHITIS [None]
  - CEREBROVASCULAR ACCIDENT [None]
  - CHEST PAIN [None]
  - CONTUSION [None]
  - CYST [None]
  - DIZZINESS [None]
  - EPISTAXIS [None]
  - FACIAL PALSY [None]
  - FALL [None]
  - FATIGUE [None]
  - HAEMATURIA [None]
  - HAEMORRHOIDS [None]
  - HEADACHE [None]
  - HOT FLUSH [None]
  - HYPOGLYCAEMIA [None]
  - HYPOTENSION [None]
  - INTERVERTEBRAL DISC DEGENERATION [None]
  - INTERVERTEBRAL DISC PROTRUSION [None]
  - LOSS OF CONSCIOUSNESS [None]
  - LUMBAR PUNCTURE HEADACHE [None]
  - MAJOR DEPRESSION [None]
  - MUSCLE STRAIN [None]
  - NECK PAIN [None]
  - OVARIAN CYST [None]
  - PALPITATIONS [None]
  - PANIC DISORDER [None]
  - PSYCHOGENIC PAIN DISORDER [None]
  - PYREXIA [None]
  - SPINAL OSTEOARTHRITIS [None]
  - STRESS INCONTINENCE [None]
  - SYNCOPE [None]
  - TEMPOROMANDIBULAR JOINT SYNDROME [None]
  - TINNITUS [None]
  - UPPER RESPIRATORY TRACT INFECTION [None]
  - VISION BLURRED [None]
  - WEIGHT INCREASED [None]
